FAERS Safety Report 8577682-6 (Version None)
Quarter: 2012Q3

REPORT INFORMATION
  Report Type: 
  Country: None (occurrence: None)
  Receive Date: 20120807
  Receipt Date: 20120724
  Transmission Date: 20120928
  Serious: Yes (Hospitalization, Other)
  Sender: FDA-Public Use
  Company Number: US-AMGEN-USASP2011045041

PATIENT
  Age: 9 Year
  Sex: Male

DRUGS (3)
  1. XGEVA [Suspect]
     Dosage: 1.5 MG, QMO
  2. XGEVA [Suspect]
     Indication: FIBROUS DYSPLASIA OF BONE
     Dosage: 1.0 MG, ONE TIME DOSE
     Dates: start: 20110201
  3. XGEVA [Suspect]
     Dosage: 1.25 MG, QMO

REACTIONS (6)
  - VOMITING [None]
  - FALL [None]
  - FEMUR FRACTURE [None]
  - HYPERCALCAEMIA [None]
  - HYPERPARATHYROIDISM SECONDARY [None]
  - HYPOPHOSPHATAEMIA [None]
